FAERS Safety Report 9410033 (Version 2)
Quarter: 2013Q3

REPORT INFORMATION
  Report Type: Report from Study
  Country: FR (occurrence: FR)
  Receive Date: 20130719
  Receipt Date: 20130904
  Transmission Date: 20140515
  Serious: Yes (Hospitalization)
  Sender: FDA-Public Use
  Company Number: FR-ROCHE-1249826

PATIENT
  Sex: Female
  Weight: 54 kg

DRUGS (3)
  1. RITUXIMAB [Suspect]
     Indication: B-CELL LYMPHOMA
     Route: 042
     Dates: start: 20080609, end: 20090727
  2. NOVONORM [Concomitant]
  3. DIAMICRON [Concomitant]

REACTIONS (2)
  - Fall [Unknown]
  - Fatigue [Not Recovered/Not Resolved]
